FAERS Safety Report 7394128-4 (Version None)
Quarter: 2011Q2

REPORT INFORMATION
  Report Type: 
  Country: None (occurrence: None)
  Receive Date: 20110405
  Receipt Date: 20110309
  Transmission Date: 20111010
  Serious: Yes (Other)
  Sender: FDA-Public Use
  Company Number: NO-ELI_LILLY_AND_COMPANY-NO201103003623

PATIENT
  Age: 16 Year
  Sex: Female
  Weight: 65 kg

DRUGS (9)
  1. STRATTERA [Suspect]
     Dosage: 65 MG, QD
     Dates: start: 20100401
  2. STRATTERA [Suspect]
     Dosage: 60 MG, QOD
     Dates: start: 20101201
  3. STRATTERA [Suspect]
     Indication: ATTENTION DEFICIT/HYPERACTIVITY DISORDER
     Dosage: 25 MG, UNK
     Dates: start: 20100301
  4. STRATTERA [Suspect]
     Dosage: 40 MG, QD
  5. STRATTERA [Suspect]
     Dosage: 65 MG, QOD
     Dates: start: 20101201
  6. STRATTERA [Suspect]
     Dosage: 40 MG, UNK
  7. STRATTERA [Suspect]
     Dosage: 50 MG, QD
  8. STRATTERA [Suspect]
     Dosage: 60 MG, QD
     Dates: start: 20100901
  9. STRATTERA [Suspect]
     Dosage: 60 MG, EACH MORNING
     Dates: start: 20110101

REACTIONS (8)
  - FATIGUE [None]
  - MALAISE [None]
  - SYNCOPE [None]
  - INFLUENZA [None]
  - THROAT TIGHTNESS [None]
  - INSOMNIA [None]
  - PYREXIA [None]
  - NAUSEA [None]
